FAERS Safety Report 18705104 (Version 1)
Quarter: 2021Q1

REPORT INFORMATION
  Report Type: Spontaneous
  Country: CA (occurrence: CA)
  Receive Date: 20210106
  Receipt Date: 20210106
  Transmission Date: 20210419
  Serious: Yes (Hospitalization)
  Sender: FDA-Public Use
  Company Number: CA-ACCORD-213060

PATIENT
  Age: 2 Year
  Sex: Female

DRUGS (9)
  1. VINCRISTINE [Suspect]
     Active Substance: VINCRISTINE
     Indication: PRODUCT USED FOR UNKNOWN INDICATION
     Dosage: SOLUTION INTRAVENOUS, 1 MG/ML
  2. SULFAMETHOXAZOLE/TRIMETHOPRIM [Concomitant]
     Active Substance: SULFAMETHOXAZOLE\TRIMETHOPRIM
  3. MERCAPTOPURINE/MERCAPTOPURINE ANHYDROUS [Concomitant]
     Active Substance: MERCAPTOPURINE
  4. ONDANSETRON [Concomitant]
     Active Substance: ONDANSETRON
  5. MACROGOL [Concomitant]
     Active Substance: POLYETHYLENE GLYCOLS
  6. METHOTREXATE. [Suspect]
     Active Substance: METHOTREXATE
     Indication: PRODUCT USED FOR UNKNOWN INDICATION
     Dosage: WITHOUT PRESERVATIVE, 40 ML SINGLE USE
     Route: 041
  7. ZINC OXIDE. [Concomitant]
     Active Substance: ZINC OXIDE
  8. COLECALCIFEROL [Concomitant]
     Active Substance: CHOLECALCIFEROL
  9. CLOTRIMAZOLE. [Concomitant]
     Active Substance: CLOTRIMAZOLE
     Dosage: USP 1 %

REACTIONS (1)
  - Febrile neutropenia [Recovering/Resolving]
